FAERS Safety Report 4289223-2 (Version None)
Quarter: 2004Q1

REPORT INFORMATION
  Report Type: 
  Country: None (occurrence: None)
  Receive Date: 20040205
  Receipt Date: 20030716
  Transmission Date: 20041129
  Serious: Yes (Hospitalization)
  Sender: FDA-Public Use
  Company Number: 2003-106614-NL

PATIENT
  Age: 33 Year
  Sex: Female
  Weight: 45.4 kg

DRUGS (6)
  1. DESOGESTREL AND ETHINYL ESTRADIOL [Suspect]
     Indication: AMENORRHOEA
     Dosage: DF DAILY ORAL
     Route: 048
     Dates: start: 20030115, end: 20030324
  2. BETASERON [Suspect]
     Indication: MULTIPLE SCLEROSIS
     Dosage: 8 MIU ALT SUBCUTANEOUS
     Route: 058
     Dates: start: 19990101
  3. DITROPAN [Concomitant]
  4. BACLOFEN [Concomitant]
  5. MACROPDANTIN [Concomitant]
  6. NOVATRONE          ^IMMUNIEX^ [Concomitant]

REACTIONS (1)
  - DEEP VEIN THROMBOSIS [None]
